FAERS Safety Report 15979309 (Version 1)
Quarter: 2019Q1

REPORT INFORMATION
  Report Type: Spontaneous
  Country: US (occurrence: US)
  Receive Date: 20190216
  Receipt Date: 20190216
  Transmission Date: 20190418
  Serious: Yes (Disabling)
  Sender: FDA-Public Use
  Company Number: None

PATIENT
  Age: 28 Year
  Sex: Female
  Weight: 65.25 kg

DRUGS (4)
  1. SERTRALINE [Suspect]
     Active Substance: SERTRALINE HYDROCHLORIDE
     Indication: DEPRESSION
     Dosage: ?          QUANTITY:30 TABLET(S);?
     Route: 048
  2. TUMS [Concomitant]
     Active Substance: CALCIUM CARBONATE
  3. SERTRALINE [Suspect]
     Active Substance: SERTRALINE HYDROCHLORIDE
     Indication: ANXIETY
     Dosage: ?          QUANTITY:30 TABLET(S);?
     Route: 048
  4. PARAGARD T 380A [Concomitant]
     Active Substance: COPPER

REACTIONS (1)
  - Dyspepsia [None]

NARRATIVE: CASE EVENT DATE: 20190216
